FAERS Safety Report 21578042 (Version 1)
Quarter: 2022Q4

REPORT INFORMATION
  Report Type: Spontaneous
  Country: US (occurrence: US)
  Receive Date: 20221110
  Receipt Date: 20221110
  Transmission Date: 20230113
  Serious: Yes (Other)
  Sender: FDA-Public Use
  Company Number: US-PFIZER INC-202201287008

PATIENT
  Age: 72 Year
  Sex: Male

DRUGS (13)
  1. INLYTA [Suspect]
     Active Substance: AXITINIB
     Dosage: 3 MG, 2X/DAY, (EVERY 12HOURS)
     Dates: start: 20220905
  2. INLYTA [Suspect]
     Active Substance: AXITINIB
     Dosage: 5 MG
  3. INLYTA [Suspect]
     Active Substance: AXITINIB
     Dosage: 3 MG, 1X/DAY
     Dates: start: 20221107
  4. KEYTRUDA [Concomitant]
     Active Substance: PEMBROLIZUMAB
     Dosage: 25 MG/ML
  5. TRELEGY ELLIPTA [Concomitant]
     Active Substance: FLUTICASONE FUROATE\UMECLIDINIUM BROMIDE\VILANTEROL TRIFENATATE
     Dosage: UNK
  6. PRASUGREL HYDROCHLORIDE [Concomitant]
     Active Substance: PRASUGREL HYDROCHLORIDE
     Dosage: UNK
  7. VITAMIN D3 [Concomitant]
     Active Substance: CHOLECALCIFEROL
     Dosage: UNK
  8. FENOFIBRATE [Concomitant]
     Active Substance: FENOFIBRATE
     Dosage: UNK
  9. XYZAL [Concomitant]
     Active Substance: LEVOCETIRIZINE DIHYDROCHLORIDE
     Dosage: UNK
  10. ATORVASTATIN CALCIUM [Concomitant]
     Active Substance: ATORVASTATIN CALCIUM
     Dosage: UNK
  11. ALBUTEROL SULFATE [Concomitant]
     Active Substance: ALBUTEROL SULFATE
     Dosage: UNK
  12. METOPROLOL SUCCINATE [Concomitant]
     Active Substance: METOPROLOL SUCCINATE
     Dosage: UNK
  13. NIFEDIPINE [Concomitant]
     Active Substance: NIFEDIPINE
     Dosage: UNK

REACTIONS (5)
  - Blood pressure increased [Recovering/Resolving]
  - Pain in extremity [Not Recovered/Not Resolved]
  - Dysphonia [Not Recovered/Not Resolved]
  - Fatigue [Not Recovered/Not Resolved]
  - Gait disturbance [Not Recovered/Not Resolved]
